FAERS Safety Report 22257599 (Version 1)
Quarter: 2023Q2

REPORT INFORMATION
  Report Type: Report from Study
  Country: BA (occurrence: BA)
  Receive Date: 20230427
  Receipt Date: 20230427
  Transmission Date: 20230722
  Serious: Yes (Death)
  Sender: FDA-Public Use
  Company Number: BA-002147023-NVSC2023BA095618

PATIENT
  Age: 53 Year
  Sex: Female

DRUGS (1)
  1. MAYZENT [Suspect]
     Active Substance: SIPONIMOD
     Indication: Secondary progressive multiple sclerosis
     Dosage: UNK, QD
     Route: 048
     Dates: start: 20220221, end: 20230420

REACTIONS (1)
  - Death [Fatal]

NARRATIVE: CASE EVENT DATE: 20230420
